FAERS Safety Report 8070546-6 (Version None)
Quarter: 2012Q1

REPORT INFORMATION
  Report Type: 
  Country: None (occurrence: None)
  Receive Date: 20120125
  Receipt Date: 20120120
  Transmission Date: 20120608
  Serious: Yes (Other)
  Sender: FDA-Public Use
  Company Number: NL-AMGEN-NLDSP2012004103

PATIENT

DRUGS (2)
  1. NEORECORMON [Concomitant]
     Dosage: UNK
  2. ARANESP [Suspect]
     Indication: RENAL FAILURE
     Dosage: UNK

REACTIONS (2)
  - THERAPEUTIC RESPONSE DECREASED [None]
  - HAEMOGLOBIN DECREASED [None]
